FAERS Safety Report 6043409-5 (Version None)
Quarter: 2009Q1

REPORT INFORMATION
  Report Type: 
  Country: None (occurrence: None)
  Receive Date: 20090120
  Receipt Date: 20090112
  Transmission Date: 20090719
  Serious: Yes (Other)
  Sender: FDA-Public Use
  Company Number: US-ASTRAZENECA-2008UW25063

PATIENT
  Age: 55 Year
  Sex: Female
  Weight: 70.3 kg

DRUGS (4)
  1. ARIMIDEX [Suspect]
     Indication: BREAST CANCER FEMALE
     Route: 048
     Dates: start: 20081001
  2. ARIMIDEX [Suspect]
     Route: 048
     Dates: end: 20081201
  3. MAXALT [Concomitant]
  4. LISINOPRIL [Concomitant]

REACTIONS (3)
  - MASTECTOMY [None]
  - MEDICATION ERROR [None]
  - MIGRAINE [None]
